FAERS Safety Report 4613635-8 (Version None)
Quarter: 2005Q1

REPORT INFORMATION
  Report Type: 
  Country: None (occurrence: None)
  Receive Date: 20050318
  Receipt Date: 20050318
  Transmission Date: 20050727
  Serious: Yes (Hospitalization)
  Sender: FDA-Public Use
  Company Number: None

PATIENT
  Sex: Female
  Weight: 48.0813 kg

DRUGS (9)
  1. SINEQUAN [Suspect]
     Indication: BIPOLAR DISORDER
     Dosage: PO    PRIOR TO ADMISSION
     Route: 048
  2. SINEQUAN [Suspect]
     Indication: DEPRESSION
     Dosage: PO    PRIOR TO ADMISSION
     Route: 048
  3. KLONOPIN [Suspect]
     Indication: BIPOLAR DISORDER
     Dosage: PO    PRIOR TO ADMISSION
     Route: 048
  4. KLONOPIN [Suspect]
     Indication: DEPRESSION
     Dosage: PO    PRIOR TO ADMISSION
     Route: 048
  5. NEURONTIN [Suspect]
     Indication: BIPOLAR DISORDER
     Dosage: PO   PRIOR TO ADMISSION
     Route: 048
  6. NEURONTIN [Suspect]
     Indication: DEPRESSION
     Dosage: PO   PRIOR TO ADMISSION
     Route: 048
  7. FIORICET [Suspect]
     Indication: BIPOLAR DISORDER
     Dosage: PO   PRIOR TO ADMISSION
     Route: 048
  8. FIORICET [Suspect]
     Indication: DEPRESSION
     Dosage: PO   PRIOR TO ADMISSION
     Route: 048
  9. ULTRAM [Concomitant]

REACTIONS (5)
  - CATATONIA [None]
  - DYSARTHRIA [None]
  - FATIGUE [None]
  - STARING [None]
  - TREATMENT NONCOMPLIANCE [None]
